FAERS Safety Report 7713594-5 (Version None)
Quarter: 2011Q3

REPORT INFORMATION
  Report Type: 
  Country: None (occurrence: None)
  Receive Date: 20110826
  Receipt Date: 20110823
  Transmission Date: 20111222
  Serious: Yes (Other)
  Sender: FDA-Public Use
  Company Number: US-PFIZER INC-2011150807

PATIENT
  Sex: Male
  Weight: 72.562 kg

DRUGS (12)
  1. GLIPIZIDE [Concomitant]
     Dosage: 5 MG, 2X/DAY
  2. PENTOXIFYLLINE [Concomitant]
     Dosage: 400 MG, 3X/DAY
  3. WARFARIN [Concomitant]
     Dosage: 7.5 MG, 1X/DAY
  4. CHANTIX [Suspect]
     Indication: SMOKING CESSATION THERAPY
     Dosage: 0.5 MG, 1X/DAY
     Route: 048
     Dates: start: 20110504, end: 20110501
  5. FOLIC ACID [Concomitant]
     Dosage: 1 MG, 1X/DAY
  6. LISINOPRIL [Concomitant]
     Dosage: 10 MG, 1X/DAY
  7. NEURONTIN [Concomitant]
     Dosage: 300 MG, 3X/DAY
  8. CHANTIX [Suspect]
     Dosage: 1 MG, 2X/DAY
     Route: 048
     Dates: start: 20110501, end: 20110601
  9. METFORMIN [Concomitant]
     Indication: DIABETES MELLITUS
     Dosage: 1000 MG, 2X/DAY
  10. CRESTOR [Concomitant]
     Dosage: 20 MG, 1X/DAY
  11. METOPROLOL [Concomitant]
     Dosage: 50 MG, 2X/DAY
  12. HYDROCHLOROTHIAZIDE [Concomitant]
     Dosage: 25 MG, 1X/DAY

REACTIONS (2)
  - VOMITING [None]
  - WEIGHT DECREASED [None]
